FAERS Safety Report 17988772 (Version 5)
Quarter: 2020Q3

REPORT INFORMATION
  Report Type: Report from Study
  Country: US (occurrence: US)
  Receive Date: 20200707
  Receipt Date: 20200923
  Transmission Date: 20201103
  Serious: No
  Sender: FDA-Public Use
  Company Number: NVSC2020US187348

PATIENT
  Sex: Female
  Weight: 136.08 kg

DRUGS (2)
  1. COSENTYX [Suspect]
     Active Substance: SECUKINUMAB
     Dosage: 150 MG, QW
     Route: 058
  2. COSENTYX [Suspect]
     Active Substance: SECUKINUMAB
     Indication: PSORIATIC ARTHROPATHY
     Dosage: 150 MG, QMO
     Route: 058

REACTIONS (11)
  - Aphonia [Unknown]
  - Nail disorder [Unknown]
  - Fall [Unknown]
  - Asthenia [Unknown]
  - Feeling cold [Unknown]
  - Muscle disorder [Unknown]
  - Injection site pain [Unknown]
  - Limb injury [Unknown]
  - Rash [Unknown]
  - Pain in extremity [Unknown]
  - Fatigue [Unknown]
